FAERS Safety Report 9397887 (Version 2)
Quarter: 2013Q3

REPORT INFORMATION
  Report Type: Report from Study
  Country: IT (occurrence: IT)
  Receive Date: 20130712
  Receipt Date: 20130722
  Transmission Date: 20140515
  Serious: Yes (Hospitalization)
  Sender: FDA-Public Use
  Company Number: IT-PFIZER INC-2013198576

PATIENT
  Age: 55 Year
  Sex: Female
  Weight: 56 kg

DRUGS (5)
  1. CRIZOTINIB [Suspect]
     Indication: NON-SMALL CELL LUNG CANCER
     Dosage: CONTINUOUS TWICE DAILY
     Route: 048
     Dates: start: 20130125, end: 20130703
  2. BUPRENORPHINE [Concomitant]
     Indication: PAIN
     Dosage: 35 NG/HOUR, CYCLIC, PATCH TO CHANGE EVERY 72 HOURS
     Route: 058
     Dates: start: 20130511
  3. RANITIDINE [Concomitant]
     Indication: PROPHYLAXIS
     Dosage: 300 MG, 1X/DAY
     Route: 048
     Dates: start: 20130308
  4. PREGABALIN [Concomitant]
     Indication: PAIN
     Dosage: 75 MG, 1X/DAY
     Route: 048
     Dates: start: 20130309
  5. GLUTAMIN FOSFORO [Concomitant]
     Indication: HYPOPHOSPHATAEMIA
     Dosage: 1 DF, 1X/DAY (1 VIAL X DAY)
     Route: 048
     Dates: start: 20130517

REACTIONS (1)
  - Pulmonary embolism [Not Recovered/Not Resolved]
